FAERS Safety Report 14678366 (Version 1)
Quarter: 2018Q1

REPORT INFORMATION
  Report Type: Report from Study
  Country: BE (occurrence: BE)
  Receive Date: 20180326
  Receipt Date: 20180326
  Transmission Date: 20180509
  Serious: Yes (Hospitalization)
  Sender: FDA-Public Use
  Company Number: BE-ROCHE-2088923

PATIENT
  Age: 61 Year
  Sex: Male
  Weight: 75 kg

DRUGS (4)
  1. RIBAVIRIN. [Suspect]
     Active Substance: RIBAVIRIN
     Indication: HEPATITIS C
     Dosage: MOST RECENT DOSE ON 21/MAY/2017
     Route: 048
     Dates: start: 20170304
  2. EXVIERA [Suspect]
     Active Substance: DASABUVIR
     Indication: CHRONIC HEPATITIS C
     Route: 048
     Dates: start: 20170304, end: 20170521
  3. VIEKIRAX [Suspect]
     Active Substance: OMBITASVIR\PARITAPREVIR\RITONAVIR
     Indication: CHRONIC HEPATITIS C
     Route: 048
     Dates: start: 20170304, end: 20170521
  4. METHADONE [Concomitant]
     Active Substance: METHADONE HYDROCHLORIDE
     Indication: DRUG WITHDRAWAL MAINTENANCE THERAPY
     Route: 065

REACTIONS (6)
  - Biliary dilatation [Recovered/Resolved]
  - Hyperammonaemia [Recovered/Resolved]
  - Pruritus generalised [Recovered/Resolved]
  - Gastric ulcer [Unknown]
  - Meningoencephalitis bacterial [Not Recovered/Not Resolved]
  - Hyperbilirubinaemia [Recovered/Resolved]

NARRATIVE: CASE EVENT DATE: 20170304
